FAERS Safety Report 9421771 (Version 2)
Quarter: 2013Q3

REPORT INFORMATION
  Report Type: Spontaneous
  Country: US (occurrence: US)
  Receive Date: 20130726
  Receipt Date: 20130923
  Transmission Date: 20140515
  Serious: No
  Sender: FDA-Public Use
  Company Number: US-B.I. PHARMACEUTICALS,INC./RIDGEFIELD-2013-BI-21699BP

PATIENT
  Age: 87 Year
  Sex: Female

DRUGS (12)
  1. SPIRIVA [Suspect]
     Indication: CHRONIC OBSTRUCTIVE PULMONARY DISEASE
     Dosage: 18 MCG
     Route: 055
     Dates: start: 201305
  2. CALCIUM AMGNESIUM ZINC [Concomitant]
     Dosage: 1 TABLET DAILY
  3. CARVEDILOL [Concomitant]
     Dosage: 25 MG
  4. FUROSEMIDE [Concomitant]
     Dosage: 40 MG
  5. GLUCOSAMINE [Concomitant]
     Dosage: 500 MG
  6. KLORCON [Concomitant]
     Dosage: 40 MEQ
  7. LEVOTHYROXINE [Concomitant]
     Dosage: 100 MCG
  8. SPIRIVA [Concomitant]
     Dosage: ONE INHALATION DAILY
     Route: 055
  9. TYLENOL [Concomitant]
     Dosage: EVERY FOUR TO SIX HOURS P.R.N PAIN
     Route: 048
  10. VITAMIN D3 [Concomitant]
     Dosage: 400 U
  11. SPIRONOLACTONE [Concomitant]
     Dosage: 2.5 MG
  12. ADVAIR [Concomitant]
     Dosage: 100/50 MCG ONE PUFF AT MORNING AND EVENING

REACTIONS (3)
  - Increased upper airway secretion [Recovered/Resolved]
  - Product quality issue [Recovered/Resolved]
  - Product quality issue [Recovered/Resolved]
